FAERS Safety Report 7520334-1 (Version None)
Quarter: 2011Q2

REPORT INFORMATION
  Report Type: 
  Country: None (occurrence: None)
  Receive Date: 20110602
  Receipt Date: 20100316
  Transmission Date: 20111010
  Serious: No
  Sender: FDA-Public Use
  Company Number: US-BAYER-201017084NA

PATIENT
  Age: 27 Year
  Sex: Male

DRUGS (1)
  1. AVELOX [Suspect]
     Dosage: UNK

REACTIONS (1)
  - ADVERSE DRUG REACTION [None]
